FAERS Safety Report 8928391 (Version 1)
Quarter: 2012Q4

REPORT INFORMATION
  Report Type: Spontaneous
  Country: US (occurrence: None)
  Receive Date: 20121126
  Receipt Date: 20121126
  Transmission Date: 20130627
  Serious: Yes (Other)
  Sender: FDA-Public Use
  Company Number: None

PATIENT
  Age: 30 Year
  Sex: Female
  Weight: 63.05 kg

DRUGS (1)
  1. L_THYROXINE 75 MCG ABBOTT [Suspect]
     Indication: THYROID DISORDER
     Route: 048
     Dates: start: 20121115, end: 20121116

REACTIONS (5)
  - Drug hypersensitivity [None]
  - Pruritus [None]
  - Swelling [None]
  - Eye swelling [None]
  - Swelling face [None]
